FAERS Safety Report 7010413-X (Version None)
Quarter: 2010Q3

REPORT INFORMATION
  Report Type: 
  Country: None (occurrence: None)
  Receive Date: 20100923
  Receipt Date: 20100722
  Transmission Date: 20110219
  Serious: No
  Sender: FDA-Public Use
  Company Number: US-BAUSCH-2010BL003905

PATIENT
  Age: 70 Year
  Sex: Female

DRUGS (3)
  1. BESIVANCE [Suspect]
     Indication: SUPERFICIAL INJURY OF EYE
     Route: 047
     Dates: start: 20100719
  2. BESIVANCE [Suspect]
     Indication: OFF LABEL USE
     Route: 047
     Dates: start: 20100719
  3. COREG [Concomitant]
     Indication: HYPERTENSION
     Route: 048

REACTIONS (2)
  - EYE DISCHARGE [None]
  - EYE IRRITATION [None]
